FAERS Safety Report 19122310 (Version 1)
Quarter: 2021Q2

REPORT INFORMATION
  Report Type: Spontaneous
  Country: US (occurrence: US)
  Receive Date: 20210412
  Receipt Date: 20210412
  Transmission Date: 20210717
  Serious: No
  Sender: FDA-Public Use
  Company Number: US-HIKMA PHARMACEUTICALS USA INC.-US-H14001-20-01687

PATIENT
  Sex: Female

DRUGS (1)
  1. MORPHINE SULFATE. [Suspect]
     Active Substance: MORPHINE SULFATE
     Indication: PANCREATIC CARCINOMA
     Dosage: THE PATIENT TOOK ONLY ONE DOSE.
     Route: 048

REACTIONS (2)
  - Vomiting [Recovered/Resolved]
  - Drug ineffective [Recovered/Resolved]
